FAERS Safety Report 20187938 (Version 1)
Quarter: 2021Q4

REPORT INFORMATION
  Report Type: Spontaneous
  Country: US (occurrence: None)
  Receive Date: 20211215
  Receipt Date: 20211215
  Transmission Date: 20220303
  Serious: Yes (Hospitalization)
  Sender: FDA-Public Use
  Company Number: None

PATIENT
  Age: 52 Year
  Sex: Male
  Weight: 92.99 kg

DRUGS (2)
  1. CASIRIVIMAB [Suspect]
     Active Substance: CASIRIVIMAB
     Indication: COVID-19
     Dosage: OTHER FREQUENCY : ONCE;?
     Route: 040
     Dates: start: 20211206, end: 20211206
  2. IMDEVIMAB [Suspect]
     Active Substance: IMDEVIMAB
     Indication: COVID-19
     Dosage: OTHER FREQUENCY : ONCE;?
     Route: 040
     Dates: start: 20211206, end: 20211206

REACTIONS (8)
  - Acute respiratory failure [None]
  - Cough [None]
  - Pyrexia [None]
  - Chills [None]
  - Decreased appetite [None]
  - Tachycardia [None]
  - Bandaemia [None]
  - Hepatic enzyme abnormal [None]

NARRATIVE: CASE EVENT DATE: 20211207
